FAERS Safety Report 7629110-2 (Version None)
Quarter: 2011Q3

REPORT INFORMATION
  Report Type: 
  Country: None (occurrence: None)
  Receive Date: 20110722
  Receipt Date: 20110722
  Transmission Date: 20111222
  Serious: No
  Sender: FDA-Public Use
  Company Number: None

PATIENT
  Age: 49 Year
  Sex: Female
  Weight: 80 kg

DRUGS (3)
  1. EFFEXOR XR [Suspect]
     Indication: MENOPAUSAL SYMPTOMS
  2. EFFEXOR XR [Suspect]
     Indication: ANXIETY
  3. EFFEXOR XR [Suspect]
     Indication: DEPRESSION

REACTIONS (8)
  - DREAMY STATE [None]
  - NIGHTMARE [None]
  - THEFT [None]
  - LABORATORY TEST ABNORMAL [None]
  - DISINHIBITION [None]
  - VOMITING [None]
  - CHROMATURIA [None]
  - PERSONALITY CHANGE [None]
